FAERS Safety Report 19134473 (Version 1)
Quarter: 2021Q2

REPORT INFORMATION
  Report Type: Report from Study
  Country: US (occurrence: US)
  Receive Date: 20210414
  Receipt Date: 20210414
  Transmission Date: 20210717
  Serious: Yes (Hospitalization, Other)
  Sender: FDA-Public Use
  Company Number: US-GILEAD-2021-0524102

PATIENT
  Age: 38 Year
  Sex: Female

DRUGS (14)
  1. LOSARTAN POTASSIUM. [Concomitant]
     Active Substance: LOSARTAN POTASSIUM
  2. CEPHALEXIN [CEFALEXIN] [Concomitant]
     Active Substance: CEPHALEXIN
  3. HUMALOG [Concomitant]
     Active Substance: INSULIN LISPRO
  4. PREDNISONE. [Concomitant]
     Active Substance: PREDNISONE
  5. PULMOZYME [Concomitant]
     Active Substance: DORNASE ALFA
  6. RETACRIT [EPOETIN ZETA] [Concomitant]
     Active Substance: ERYTHROPOIETIN
  7. CREON [Concomitant]
     Active Substance: PANCRELIPASE AMYLASE\PANCRELIPASE LIPASE\PANCRELIPASE PROTEASE
  8. VERAPAMIL [Concomitant]
     Active Substance: VERAPAMIL HYDROCHLORIDE
  9. TRIKAFTA [Concomitant]
     Active Substance: ELEXACAFTOR\IVACAFTOR\TEZACAFTOR
  10. CARVEDILOL. [Concomitant]
     Active Substance: CARVEDILOL
  11. NOVOLOG [Concomitant]
     Active Substance: INSULIN ASPART
  12. VITAMIN D3 [Concomitant]
     Active Substance: CHOLECALCIFEROL
  13. AZTREONAM LYSINE [Suspect]
     Active Substance: AZTREONAM LYSINE
     Indication: CYSTIC FIBROSIS LUNG
     Dosage: 75 MG, TID 28 DAYS ON AND 28 DAYS OFF
     Route: 055
     Dates: start: 20151110
  14. CALCITRIOL. [Concomitant]
     Active Substance: CALCITRIOL

REACTIONS (5)
  - Pneumonia [Not Recovered/Not Resolved]
  - Respiratory distress [Not Recovered/Not Resolved]
  - Chest discomfort [Not Recovered/Not Resolved]
  - Dyspnoea [Not Recovered/Not Resolved]
  - Product use issue [Unknown]

NARRATIVE: CASE EVENT DATE: 20210329
